FAERS Safety Report 16058215 (Version 1)
Quarter: 2019Q1

REPORT INFORMATION
  Report Type: Spontaneous
  Country: US (occurrence: US)
  Receive Date: 20190311
  Receipt Date: 20190311
  Transmission Date: 20190418
  Serious: No
  Sender: FDA-Public Use
  Company Number: US-VYERA PHARMACEUTICALS, LLC-2018VYE00045

PATIENT
  Sex: Male

DRUGS (1)
  1. DARAPRIM [Suspect]
     Active Substance: PYRIMETHAMINE
     Dosage: 25 MG, 3X/DAY
     Route: 048

REACTIONS (1)
  - Mood altered [Unknown]
